FAERS Safety Report 21946155 (Version 1)
Quarter: 2023Q1

REPORT INFORMATION
  Report Type: Spontaneous
  Country: US (occurrence: US)
  Receive Date: 20230202
  Receipt Date: 20230202
  Transmission Date: 20230417
  Serious: No
  Sender: FDA-Public Use
  Company Number: US-ADVANZ PHARMA-202209005755

PATIENT

DRUGS (6)
  1. ATROPINE SULFATE\HYOSCYAMINE SULFATE\PHENOBARBITAL\SCOPOLAMINE HYDROBR [Suspect]
     Active Substance: ATROPINE SULFATE\HYOSCYAMINE SULFATE\PHENOBARBITAL\SCOPOLAMINE HYDROBROMIDE
     Indication: Abdominal pain upper
     Dosage: UNK, QD, (3 TO 4 TIMES DAILY) DONNATAL ORAL SUSPENSION
     Route: 048
  2. ATROPINE SULFATE\HYOSCYAMINE SULFATE\PHENOBARBITAL\SCOPOLAMINE HYDROBR [Suspect]
     Active Substance: ATROPINE SULFATE\HYOSCYAMINE SULFATE\PHENOBARBITAL\SCOPOLAMINE HYDROBROMIDE
     Indication: Oesophageal spasm
     Dosage: UNK, NEW BATCH
     Route: 048
  3. Viscus Lidocaine [Concomitant]
  4. GAVISCON [Concomitant]
     Active Substance: ALUMINUM HYDROXIDE\MAGNESIUM CARBONATE
  5. MESTINON [Concomitant]
     Active Substance: PYRIDOSTIGMINE BROMIDE
  6. Soliris Infusion [Concomitant]

REACTIONS (5)
  - Therapy non-responder [Unknown]
  - Product storage error [Unknown]
  - Product storage error [Unknown]
  - Physical product label issue [Unknown]
  - Contraindicated product administered [Unknown]
